FAERS Safety Report 20120702 (Version 1)
Quarter: 2021Q4

REPORT INFORMATION
  Report Type: Spontaneous
  Country: CH (occurrence: CH)
  Receive Date: 20211126
  Receipt Date: 20211126
  Transmission Date: 20220304
  Serious: Yes (Death, Hospitalization, Other)
  Sender: FDA-Public Use
  Company Number: CH-SM-2021-27844

PATIENT
  Age: 58 Year
  Sex: Female
  Weight: 88 kg

DRUGS (17)
  1. PLAVIX [Suspect]
     Active Substance: CLOPIDOGREL BISULFATE
     Dosage: 1 (75 MG) DF, QD
     Route: 048
     Dates: start: 20210716
  2. IRBESARTAN [Suspect]
     Active Substance: IRBESARTAN
     Dosage: 1 DF, QD
     Route: 048
  3. COMIRNATY [Suspect]
     Active Substance: TOZINAMERAN
     Indication: Immunisation
     Dosage: 1 DF, QD
     Route: 030
     Dates: start: 20210504, end: 20210504
  4. COMIRNATY [Suspect]
     Active Substance: TOZINAMERAN
     Dosage: 1 DF, QD
     Route: 030
     Dates: start: 20210601, end: 20210601
  5. FOLIC ACID [Concomitant]
     Active Substance: FOLIC ACID
     Dosage: 1 DF, QD
     Route: 048
  6. AMLODIPINE [Concomitant]
     Active Substance: AMLODIPINE BESYLATE
     Dosage: 1 DF, QD
     Route: 048
  7. CALCIUM\CHOLECALCIFEROL [Concomitant]
     Active Substance: CALCIUM\CHOLECALCIFEROL
     Dosage: 1 DF, QD ( 500/800 )
     Route: 048
  8. DAFALGAN [Concomitant]
     Active Substance: ACETAMINOPHEN
     Dosage: 1 DF, QID (1-1-1-1 )
     Route: 048
  9. EZETIMIBE\ROSUVASTATIN [Concomitant]
     Active Substance: EZETIMIBE\ROSUVASTATIN
     Dosage: 1 DF, QD (10/20 MG)
     Route: 048
  10. ESOMEPRAZOLE [Concomitant]
     Active Substance: ESOMEPRAZOLE
     Dosage: 1 DF, QD
     Route: 048
  11. LONITEN [Concomitant]
     Active Substance: MINOXIDIL
     Dosage: 0.5 DF, QOD
     Route: 048
  12. RISPERDAL [Concomitant]
     Active Substance: RISPERIDONE
     Dosage: 1 DF, Q3D (1 MG (3 MG/ TAG))
     Route: 048
  13. VALSARTAN [Concomitant]
     Active Substance: VALSARTAN
     Dosage: 1 DF, QD
     Route: 048
  14. POVIDONE [Concomitant]
     Active Substance: POVIDONE
     Dosage: 1 DF, QOD
     Route: 048
  15. SYMBICORT [Concomitant]
     Active Substance: BUDESONIDE\FORMOTEROL FUMARATE DIHYDRATE
     Dosage: 1 DF, QOD (200/6)
  16. REMIFENTANIL HYDROCHLORIDE [Interacting]
     Active Substance: REMIFENTANIL HYDROCHLORIDE
     Dosage: 1 DF, QD
  17. BISOPROLOL [Concomitant]
     Active Substance: BISOPROLOL
     Dosage: 1 DF, QD
     Route: 048

REACTIONS (1)
  - Intestinal haemorrhage [Fatal]

NARRATIVE: CASE EVENT DATE: 20210510
